FAERS Safety Report 5802243-9 (Version None)
Quarter: 2008Q3

REPORT INFORMATION
  Report Type: 
  Country: None (occurrence: None)
  Receive Date: 20080707
  Receipt Date: 20080625
  Transmission Date: 20090109
  Serious: Yes (Hospitalization)
  Sender: FDA-Public Use
  Company Number: FR-PFIZER INC-2008054038

PATIENT
  Sex: Female

DRUGS (10)
  1. LYRICA [Suspect]
     Route: 048
     Dates: start: 20080509, end: 20080520
  2. LAMALINE [Suspect]
     Route: 048
     Dates: start: 20080514, end: 20080520
  3. PREVISCAN [Suspect]
     Route: 048
  4. DAFALGAN [Suspect]
     Route: 048
     Dates: start: 20080509, end: 20080520
  5. LANTUS [Concomitant]
  6. DIGOXIN [Concomitant]
  7. LIPANTHYL [Concomitant]
  8. LASIX [Concomitant]
  9. COZAAR [Concomitant]
  10. NOVONORM [Concomitant]

REACTIONS (4)
  - CONFUSIONAL STATE [None]
  - HYPOGLYCAEMIA [None]
  - INTERNATIONAL NORMALISED RATIO INCREASED [None]
  - URINARY RETENTION [None]
